FAERS Safety Report 6492562-8 (Version None)
Quarter: 2009Q4

REPORT INFORMATION
  Report Type: 
  Country: None (occurrence: None)
  Receive Date: 20091211
  Receipt Date: 20091211
  Transmission Date: 20100525
  Serious: No
  Sender: FDA-Public Use
  Company Number: None

PATIENT
  Sex: Female
  Weight: 63.5036 kg

DRUGS (1)
  1. ENABLEX [Suspect]
     Indication: HYPERTONIC BLADDER
     Dosage: 1 A DAY AT NIGHT
     Dates: start: 20091030, end: 20091125

REACTIONS (2)
  - URINARY INCONTINENCE [None]
  - VISION BLURRED [None]
